FAERS Safety Report 5417879-7 (Version None)
Quarter: 2007Q3

REPORT INFORMATION
  Report Type: 
  Country: None (occurrence: None)
  Receive Date: 20070815
  Receipt Date: 20070806
  Transmission Date: 20080115
  Serious: Yes (Other)
  Sender: FDA-Public Use
  Company Number: GXKR2007GB06660

PATIENT
  Age: 77 Year
  Sex: Male

DRUGS (2)
  1. NYSTATIN [Suspect]
     Dosage: 1 DF, ORAL
     Route: 048
     Dates: start: 20070710, end: 20070710
  2. MOXIFLOXACIN (MOXIFLOXACIN) UNKNOWN [Suspect]
     Dosage: 400 MG, ORAL
     Route: 048
     Dates: start: 20070710, end: 20070710

REACTIONS (1)
  - SWELLING FACE [None]
